FAERS Safety Report 20457614 (Version 1)
Quarter: 2022Q1

REPORT INFORMATION
  Report Type: Spontaneous
  Country: US (occurrence: US)
  Receive Date: 20220210
  Receipt Date: 20220210
  Transmission Date: 20220423
  Serious: Yes (Other)
  Sender: FDA-Public Use
  Company Number: US-NOVARTISPH-NVSC2022US027213

PATIENT
  Age: 13 Month
  Sex: Female

DRUGS (2)
  1. CARBOPLATIN [Suspect]
     Active Substance: CARBOPLATIN
     Indication: Pineal neoplasm
     Dosage: UNK UNK, CYCLIC (THREE CYCLES)
     Route: 065
  2. THIOTEPA [Suspect]
     Active Substance: THIOTEPA
     Indication: Pineal neoplasm
     Dosage: UNK UNK, CYCLIC (THREE CYCLES)
     Route: 065

REACTIONS (8)
  - Febrile neutropenia [Unknown]
  - Pseudomonal bacteraemia [Unknown]
  - Gross motor delay [Unknown]
  - Norovirus infection [Unknown]
  - Speech disorder developmental [Unknown]
  - Fine motor delay [Unknown]
  - Product use in unapproved indication [Unknown]
  - Product use issue [Unknown]
